FAERS Safety Report 4866328-6 (Version None)
Quarter: 2005Q4

REPORT INFORMATION
  Report Type: 
  Country: None (occurrence: None)
  Receive Date: 20051221
  Receipt Date: 20051209
  Transmission Date: 20060501
  Serious: Yes (Other)
  Sender: FDA-Public Use
  Company Number: 2005168151

PATIENT
  Age: 43 Year
  Sex: Female

DRUGS (4)
  1. GEODON [Suspect]
     Indication: AFFECTIVE DISORDER
     Dosage: 60 MG (60 MG, 1 IN 1 D), ORAL
     Route: 048
     Dates: start: 20050101
  2. FISH OIL (FISH OIL) [Suspect]
     Indication: AFFECTIVE DISORDER
     Dates: start: 20050101, end: 20051202
  3. ALL OTHER THERAPEUTIC PRODUCTS (ALL OTHER THERAPEUTIC PRODUCTS) [Suspect]
     Indication: ILL-DEFINED DISORDER
  4. KLONOPIN [Concomitant]

REACTIONS (2)
  - DRUG INTERACTION [None]
  - MENORRHAGIA [None]
